FAERS Safety Report 9100277 (Version 1)
Quarter: 2013Q1

REPORT INFORMATION
  Report Type: Spontaneous
  Country: US (occurrence: US)
  Receive Date: 20130214
  Receipt Date: 20130214
  Transmission Date: 20140127
  Serious: No
  Sender: FDA-Public Use
  Company Number: US-PFIZER INC-2013056934

PATIENT
  Sex: Female

DRUGS (1)
  1. LYRICA [Suspect]
     Dosage: 1 DF, 2X/DAY
     Route: 048
     Dates: start: 20130202

REACTIONS (2)
  - Oropharyngeal pain [Unknown]
  - Dysphonia [Unknown]
